FAERS Safety Report 8846696 (Version 3)
Quarter: 2012Q4

REPORT INFORMATION
  Report Type: Report from Study
  Country: AU (occurrence: AU)
  Receive Date: 20121017
  Receipt Date: 20121106
  Transmission Date: 20130627
  Serious: Yes (Hospitalization)
  Sender: FDA-Public Use
  Company Number: AU-PFIZER INC-2012249971

PATIENT
  Age: 70 Year
  Sex: Male
  Weight: 100.6 kg

DRUGS (16)
  1. CYCLOPHOSPHAMIDE [Suspect]
     Indication: NODULAR (FOLLICULAR) LYMPHOMA
  2. VINCRISTINE SULFATE [Suspect]
     Indication: NODULAR (FOLLICULAR) LYMPHOMA
  3. DOXORUBICIN HCL [Suspect]
     Indication: NODULAR (FOLLICULAR) LYMPHOMA
  4. PREDNISONE [Suspect]
     Indication: NODULAR (FOLLICULAR) LYMPHOMA
  5. RITUXIMAB [Suspect]
     Indication: NODULAR (FOLLICULAR) LYMPHOMA
     Dosage: 1400 mg, every 3 weeks
     Route: 058
     Dates: start: 20120806
  6. PARACETAMOL [Concomitant]
     Indication: PREMEDICATION
     Dosage: UNK
     Dates: start: 20120806
  7. CLARATYNE [Concomitant]
     Indication: PREMEDICATION
     Dosage: UNK
     Dates: start: 20120806
  8. KYTRIL [Concomitant]
     Indication: PREMEDICATION
     Dosage: UNK
     Dates: start: 20120806
  9. HYDROCORTISONE [Concomitant]
     Dosage: UNK
     Dates: start: 20120806
  10. ALLOPURINOL [Concomitant]
     Indication: GOUT
     Dosage: UNK
     Dates: start: 20120806
  11. ALLOPURINOL [Concomitant]
     Indication: PROPHYLAXIS
  12. BACTRIM [Concomitant]
     Indication: PROPHYLAXIS
     Dosage: UNK
     Dates: start: 20120806
  13. PARIET [Concomitant]
     Indication: PROPHYLAXIS
     Dosage: UNK
     Dates: start: 20120806
  14. EZETROL [Concomitant]
     Indication: HYPERLIPIDAEMIA
  15. KARVEZIDE [Concomitant]
     Indication: HYPERTENSION
  16. NEULASTA [Concomitant]
     Dosage: UNK
     Dates: start: 20120809

REACTIONS (1)
  - Acute myocardial infarction [Recovered/Resolved]
